FAERS Safety Report 6569275-7 (Version None)
Quarter: 2010Q1

REPORT INFORMATION
  Report Type: 
  Country: None (occurrence: None)
  Receive Date: 20100201
  Receipt Date: 20100201
  Transmission Date: 20100710
  Serious: No
  Sender: FDA-Public Use
  Company Number: None

PATIENT
  Age: 86 Year
  Sex: Female
  Weight: 65.5 kg

DRUGS (2)
  1. MARCAINE [Suspect]
     Indication: KNEE ARTHROPLASTY
     Dosage: 1.7 ML ONE TIME DOSE INTRATHCAL
     Route: 037
     Dates: start: 20100125
  2. MARCAINE [Suspect]
     Indication: SPINAL ANAESTHESIA
     Dosage: 1.7 ML ONE TIME DOSE INTRATHCAL
     Route: 037
     Dates: start: 20100125

REACTIONS (1)
  - INADEQUATE ANALGESIA [None]
